FAERS Safety Report 7390447-6 (Version None)
Quarter: 2011Q2

REPORT INFORMATION
  Report Type: 
  Country: None (occurrence: None)
  Receive Date: 20110401
  Receipt Date: 20110328
  Transmission Date: 20111010
  Serious: Yes (Hospitalization, Disabling)
  Sender: FDA-Public Use
  Company Number: US-MERCK-1103USA02158

PATIENT
  Age: 61 Year
  Sex: Female

DRUGS (7)
  1. LIPITOR [Concomitant]
     Route: 065
     Dates: start: 20060101
  2. ALLEGRA [Concomitant]
     Route: 065
  3. AMBIEN [Concomitant]
     Route: 065
  4. PROVENTIL [Concomitant]
     Route: 065
  5. FOSAMAX [Suspect]
     Indication: OSTEOPENIA
     Route: 048
     Dates: start: 20050810, end: 20110301
  6. CALCIUM (UNSPECIFIED) [Concomitant]
     Route: 065
  7. ADVAIR DISKUS 100/50 [Concomitant]
     Route: 065

REACTIONS (2)
  - FEMORAL NECK FRACTURE [None]
  - FALL [None]
